FAERS Safety Report 5811494-9 (Version None)
Quarter: 2008Q3

REPORT INFORMATION
  Report Type: 
  Country: None (occurrence: None)
  Receive Date: 20080716
  Receipt Date: 20080707
  Transmission Date: 20090109
  Serious: Yes (Other)
  Sender: FDA-Public Use
  Company Number: DE-NOVOPROD-277138

PATIENT
  Sex: Male
  Weight: 35 kg

DRUGS (1)
  1. NORDITROPIN [Suspect]
     Dosage: .975 UNK, QD
     Route: 058
     Dates: start: 20080312, end: 20080707

REACTIONS (1)
  - NEOPLASM PROGRESSION [None]
